FAERS Safety Report 9886954 (Version 1)
Quarter: 2014Q1

REPORT INFORMATION
  Report Type: Spontaneous
  Country: US (occurrence: US)
  Receive Date: 20140211
  Receipt Date: 20140211
  Transmission Date: 20141002
  Serious: Yes (Other)
  Sender: FDA-Public Use
  Company Number: GXBR2014US000667

PATIENT
  Age: 80 Year
  Sex: Female

DRUGS (2)
  1. LORATADINE TABLETS USP [Suspect]
     Indication: HYPERSENSITIVITY
     Dosage: UNK DF, UNK
     Route: 048
  2. TYLENOL [Concomitant]

REACTIONS (1)
  - Cerebrovascular accident [Unknown]
